FAERS Safety Report 16380136 (Version 2)
Quarter: 2019Q2

REPORT INFORMATION
  Report Type: Spontaneous
  Country: TR (occurrence: TR)
  Receive Date: 20190601
  Receipt Date: 20190621
  Transmission Date: 20190711
  Serious: Yes (Hospitalization)
  Sender: FDA-Public Use
  Company Number: TR-SUN PHARMACEUTICAL INDUSTRIES LTD-2019RR-209308

PATIENT
  Age: 68 Year
  Sex: Female

DRUGS (7)
  1. FUROSEMIDE. [Concomitant]
     Active Substance: FUROSEMIDE
     Indication: CORONARY ARTERY DISEASE
  2. FUROSEMIDE. [Concomitant]
     Active Substance: FUROSEMIDE
     Indication: CARDIAC FAILURE CONGESTIVE
     Dosage: UNK
     Route: 065
  3. DIGOXIN. [Suspect]
     Active Substance: DIGOXIN
     Indication: CARDIAC FAILURE CONGESTIVE
     Dosage: UNK
     Route: 065
  4. COUMADIN [Interacting]
     Active Substance: WARFARIN SODIUM
     Indication: CARDIAC FAILURE CONGESTIVE
     Dosage: 5 MILLIGRAM, DAILY
     Route: 065
  5. COUMADIN [Interacting]
     Active Substance: WARFARIN SODIUM
     Indication: CORONARY ARTERY DISEASE
  6. AUGMENTIN [Interacting]
     Active Substance: AMOXICILLIN\CLAVULANATE POTASSIUM
     Indication: RESPIRATORY TRACT INFECTION
     Dosage: 1000 MILLIGRAM, BID
     Route: 048
  7. DIGOXIN. [Interacting]
     Active Substance: DIGOXIN
     Indication: CORONARY ARTERY DISEASE

REACTIONS (3)
  - Drug interaction [Unknown]
  - Choroidal haemorrhage [Not Recovered/Not Resolved]
  - International normalised ratio increased [Recovering/Resolving]
